FAERS Safety Report 9029775 (Version 3)
Quarter: 2013Q2

REPORT INFORMATION
  Report Type: Report from Study
  Country: DE (occurrence: DE)
  Receive Date: 20130124
  Receipt Date: 20130423
  Transmission Date: 20140414
  Serious: Yes (Hospitalization)
  Sender: FDA-Public Use
  Company Number: DE-ABBOTT-13P-062-1039255-00

PATIENT
  Age: 49 Year
  Sex: Female
  Weight: 80 kg

DRUGS (1)
  1. HUMIRA PEN [Suspect]
     Indication: PSORIASIS
     Dates: start: 20120625, end: 20121216

REACTIONS (3)
  - Epilepsy [Recovered/Resolved]
  - Migraine with aura [Unknown]
  - Nausea [Unknown]
